FAERS Safety Report 8799602 (Version 1)
Quarter: 2012Q4

REPORT INFORMATION
  Report Type: 
  Country: FI (occurrence: FI)
  Receive Date: 20120919
  Receipt Date: 20120919
  Transmission Date: 20130627
  Serious: Yes (Death, Hospitalization)
  Sender: FDA-Public Use
  Company Number: FI-JNJFOC-20120907019

PATIENT

DRUGS (8)
  1. DOXORUBICIN [Suspect]
     Indication: MANTLE CELL LYMPHOMA
     Dosage: on day 3 of cyles 1, 3, 5  and on day 1 of cycle 9 and 10
     Route: 042
  2. RITUXIMAB [Suspect]
     Indication: MANTLE CELL LYMPHOMA
     Dosage: on day 1 during cycle 1,2, 3,4, 5,6, 7, and 8
     Route: 042
  3. CYCLOPHOSPHAMIDE [Suspect]
     Indication: MANTLE CELL LYMPHOMA
     Dosage: on day 3 during cycle 1,3 and 5, and on day 1 during cycle 9 and 10
     Route: 042
  4. VINCRISTINE [Suspect]
     Indication: MANTLE CELL LYMPHOMA
     Dosage: (maximum dose of 2mg) day 3 during cycle 1, 3, 5, and on day during cycle 9 and 10
     Route: 042
  5. PREDNISOLONE [Suspect]
     Indication: MANTLE CELL LYMPHOMA
     Dosage: days 3 to 7 during cycle 1, 3, 5, and on days 1 to 5 during cycle 9 and 10
     Route: 048
  6. CYTARABINE [Suspect]
     Indication: MANTLE CELL LYMPHOMA
     Dosage: 3hr infusion, 4 doses with 12hr intervals on days 3-4 (cycle 2 and 4), on days 2-3 in cycle 6-8
     Route: 042
  7. FLUDARA [Suspect]
     Indication: MANTLE CELL LYMPHOMA
     Dosage: 4 hours before last cytarabine on days 2-3 (cycles 6, 7 and 8)
     Route: 042
  8. GRANULOCYTE COLONY STIMULATING FACTOR [Concomitant]
     Indication: PRODUCT USED FOR UNKNOWN INDICATION
     Route: 065

REACTIONS (1)
  - Acute myeloid leukaemia [Fatal]
